FAERS Safety Report 8356911-8 (Version None)
Quarter: 2012Q2

REPORT INFORMATION
  Report Type: 
  Country: None (occurrence: None)
  Receive Date: 20120514
  Receipt Date: 20120503
  Transmission Date: 20120825
  Serious: Yes (Other)
  Sender: FDA-Public Use
  Company Number: CA-JNJFOC-20120504747

PATIENT
  Sex: Female
  Weight: 70.4 kg

DRUGS (10)
  1. PREVACID [Concomitant]
     Route: 065
  2. CORTISONE ACETATE [Concomitant]
     Dosage: IN BACK (PRN) AND RIGHT KNEE
     Route: 065
  3. REMICADE [Suspect]
     Indication: CROHN'S DISEASE
     Dosage: 17TH INFUSION
     Route: 042
     Dates: start: 20120503
  4. PENTASA [Concomitant]
     Route: 065
  5. PREMARIN [Concomitant]
     Route: 065
  6. REMICADE [Suspect]
     Route: 042
     Dates: start: 20110101
  7. MICARDIS [Concomitant]
     Route: 065
  8. APO-BROMAZEPAM [Concomitant]
     Route: 065
  9. SYNTHROID [Concomitant]
     Route: 065
  10. ALL OTHER THERAPEUTICS [Concomitant]
     Indication: ARTHRALGIA
     Route: 061

REACTIONS (2)
  - BRONCHITIS VIRAL [None]
  - CATARACT [None]
